FAERS Safety Report 19453633 (Version 1)
Quarter: 2021Q2

REPORT INFORMATION
  Report Type: Spontaneous
  Country: US (occurrence: US)
  Receive Date: 20210623
  Receipt Date: 20210623
  Transmission Date: 20210717
  Serious: No
  Sender: FDA-Public Use
  Company Number: US-PFIZER INC-2021423409

PATIENT
  Age: 61 Year
  Sex: Female

DRUGS (1)
  1. COLESTIPOL HCL [Suspect]
     Active Substance: COLESTIPOL HYDROCHLORIDE
     Dosage: UNK

REACTIONS (4)
  - Intentional product use issue [Unknown]
  - Foreign body in gastrointestinal tract [Unknown]
  - Product size issue [Unknown]
  - Wrong technique in product usage process [Unknown]
